FAERS Safety Report 6065959-8 (Version None)
Quarter: 2009Q1

REPORT INFORMATION
  Report Type: 
  Country: None (occurrence: None)
  Receive Date: 20090205
  Receipt Date: 20090203
  Transmission Date: 20090719
  Serious: Yes (Life-Threatening, Hospitalization)
  Sender: FDA-Public Use
  Company Number: KR-BRISTOL-MYERS SQUIBB COMPANY-14490924

PATIENT
  Age: 39 Year
  Sex: Female
  Weight: 62 kg

DRUGS (3)
  1. CETUXIMAB [Suspect]
     Indication: GASTROOESOPHAGEAL CANCER
     Dosage: MOST RECENT INFUSION ON 23JAN09,TEMPORARILY DISCONTINUED ON 30JAN09
     Route: 042
     Dates: start: 20081118, end: 20090123
  2. CISPLATIN [Suspect]
     Indication: GASTROOESOPHAGEAL CANCER
     Dosage: FREQ-ON DAY 1 OF CYCLE
     Route: 042
     Dates: start: 20081118, end: 20090123
  3. CAPECITABINE [Suspect]
     Indication: GASTROOESOPHAGEAL CANCER
     Dosage: FREQ-DAY 1-15 CYCLE, TEMPORARILY DISCONTINUED ON 30JAN09
     Route: 048
     Dates: start: 20081118, end: 20090130

REACTIONS (1)
  - DYSPNOEA [None]
